FAERS Safety Report 18586737 (Version 1)
Quarter: 2020Q4

REPORT INFORMATION
  Report Type: Spontaneous
  Country: US (occurrence: US)
  Receive Date: 20201204
  Receipt Date: 20201204
  Transmission Date: 20210114
  Serious: Yes (Other)
  Sender: FDA-Public Use
  Company Number: None

PATIENT
  Age: 29 Year
  Sex: Male

DRUGS (2)
  1. QUETIAPINE XR 200MG [Suspect]
     Active Substance: QUETIAPINE
     Indication: AFFECTIVE DISORDER
     Dosage: ?          OTHER FREQUENCY:QHS;?
     Route: 048
  2. QUETIAPINE 400MG [Suspect]
     Active Substance: QUETIAPINE
     Indication: AFFECTIVE DISORDER
     Route: 048

REACTIONS (2)
  - Product substitution issue [None]
  - Dystonia [None]

NARRATIVE: CASE EVENT DATE: 201403
